FAERS Safety Report 20727932 (Version 1)
Quarter: 2022Q2

REPORT INFORMATION
  Report Type: Spontaneous
  Country: BE (occurrence: BE)
  Receive Date: 20220419
  Receipt Date: 20220419
  Transmission Date: 20220721
  Serious: Yes (Death, Other)
  Sender: FDA-Public Use
  Company Number: BE-BAXTER-2022BAX008540

PATIENT
  Age: 54 Year
  Sex: Male
  Weight: 75 kg

DRUGS (12)
  1. SEVOFLURANE [Suspect]
     Active Substance: SEVOFLURANE
     Indication: Sedation complication
     Dosage: END-TIDAL CONCENTRATION OF 1% VOL AND INJECTION RATE OF 6-0 ML/H
     Route: 055
  2. PROPOFOL [Concomitant]
     Active Substance: PROPOFOL
     Indication: Sedation
     Dosage: INITIAL SEDATIVE DRUG REGIMEN
     Route: 065
  3. PROPOFOL [Concomitant]
     Active Substance: PROPOFOL
     Route: 042
  4. MIDAZOLAM [Concomitant]
     Active Substance: MIDAZOLAM
     Indication: Sedation
     Dosage: INITIAL SEDATIVE DRUG REGIMEN
     Route: 065
  5. MIDAZOLAM [Concomitant]
     Active Substance: MIDAZOLAM
     Route: 042
  6. KETAMINE [Concomitant]
     Active Substance: KETAMINE
     Indication: Sedation
     Dosage: INITIAL SEDATIVE DRUG REGIMEN
     Route: 065
  7. KETAMINE [Concomitant]
     Active Substance: KETAMINE
     Route: 042
  8. SUFENTANIL [Concomitant]
     Active Substance: SUFENTANIL
     Indication: Sedation
     Dosage: INITIAL SEDATIVE DRUG REGIMEN
     Route: 065
  9. SUFENTANIL [Concomitant]
     Active Substance: SUFENTANIL
     Route: 042
  10. CLONIDINE [Concomitant]
     Active Substance: CLONIDINE
     Indication: Sedation
     Route: 042
  11. CISATRACURIUM [Concomitant]
     Active Substance: CISATRACURIUM
     Indication: Neuromuscular blockade
     Dosage: INITIAL SEDATIVE DRUG REGIMEN
     Route: 065
  12. NITRIC OXIDE [Concomitant]
     Active Substance: NITRIC OXIDE
     Indication: Product used for unknown indication
     Route: 055

REACTIONS (2)
  - Acquired gene mutation [Fatal]
  - Nephrogenic diabetes insipidus [Unknown]
